FAERS Safety Report 6593896-9 (Version None)
Quarter: 2010Q1

REPORT INFORMATION
  Report Type: 
  Country: None (occurrence: None)
  Receive Date: 20100222
  Receipt Date: 20100209
  Transmission Date: 20100710
  Serious: Yes (Hospitalization)
  Sender: FDA-Public Use
  Company Number: PHEH2010US01301

PATIENT
  Age: 61 Year
  Sex: Male

DRUGS (1)
  1. GLEEVEC [Suspect]
     Indication: CHRONIC MYELOID LEUKAEMIA
     Dosage: 400 MG DAILY
     Route: 048
     Dates: start: 20090801, end: 20100101

REACTIONS (10)
  - CHRONIC MYELOID LEUKAEMIA [None]
  - CONFUSIONAL STATE [None]
  - DEHYDRATION [None]
  - DRUG RESISTANCE [None]
  - FLANK PAIN [None]
  - LETHARGY [None]
  - OEDEMA [None]
  - RENAL FAILURE [None]
  - URATE NEPHROPATHY [None]
  - URINE OUTPUT DECREASED [None]
